FAERS Safety Report 11036780 (Version 1)
Quarter: 2015Q2

REPORT INFORMATION
  Report Type: Spontaneous
  Country: US (occurrence: US)
  Receive Date: 20150416
  Receipt Date: 20150416
  Transmission Date: 20150821
  Serious: No
  Sender: FDA-Public Use
  Company Number: US-DRREDDYS-USA/USA/15/0046596

PATIENT
  Age: 17 Year
  Sex: Male

DRUGS (3)
  1. AVAR [Concomitant]
     Active Substance: SULFACETAMIDE SODIUM\SULFUR
     Indication: ACNE
     Route: 065
  2. ZENATANE [Suspect]
     Active Substance: ISOTRETINOIN
     Indication: PRODUCT USED FOR UNKNOWN INDICATION
     Route: 048
     Dates: start: 20150120, end: 20150219
  3. FINACEA [Concomitant]
     Active Substance: AZELAIC ACID
     Indication: ACNE
     Route: 065

REACTIONS (1)
  - Lipids abnormal [Unknown]

NARRATIVE: CASE EVENT DATE: 20150309
